FAERS Safety Report 9386867 (Version 1)
Quarter: 2013Q3

REPORT INFORMATION
  Report Type: Spontaneous
  Country: DE (occurrence: DE)
  Receive Date: 20130708
  Receipt Date: 20130708
  Transmission Date: 20140515
  Serious: Yes (Hospitalization)
  Sender: FDA-Public Use
  Company Number: DE-BAYER-2013-078949

PATIENT
  Age: 45 Year
  Sex: Male

DRUGS (1)
  1. BETAFERON [Suspect]

REACTIONS (1)
  - Pulmonary embolism [None]
